FAERS Safety Report 9123544 (Version 1)
Quarter: 2013Q1

REPORT INFORMATION
  Report Type: Spontaneous
  Country: IT (occurrence: IT)
  Receive Date: 20130115
  Receipt Date: 20130115
  Transmission Date: 20140127
  Serious: Yes (Hospitalization)
  Sender: FDA-Public Use
  Company Number: IT-BRISTOL-MYERS SQUIBB COMPANY-17280595

PATIENT
  Age: 85 Year
  Sex: Female

DRUGS (4)
  1. COUMADIN TABS 5 MG [Suspect]
     Indication: ATRIAL FIBRILLATION
     Dosage: INTERRUPTED ON 19NOV2012
     Route: 048
     Dates: start: 20120101
  2. EUTIROX [Concomitant]
     Dosage: TABS
  3. DIAMICRON [Concomitant]
     Dosage: TABS
  4. RYTMONORM [Concomitant]
     Dosage: TABS

REACTIONS (1)
  - Syncope [Not Recovered/Not Resolved]
